FAERS Safety Report 8780263 (Version 1)
Quarter: 2012Q4

REPORT INFORMATION
  Report Type: Spontaneous
  Country: US (occurrence: None)
  Receive Date: 20120829
  Receipt Date: 20120829
  Transmission Date: 20130627
  Serious: Yes (Other)
  Sender: FDA-Public Use
  Company Number: US-DEXPHARM-20121107

PATIENT
  Sex: Female

DRUGS (2)
  1. OMEPRAZOLE [Suspect]
     Dosage: once a day
     Route: 048
     Dates: start: 20120711, end: 20120712
  2. OMEPRAZOLE [Suspect]
     Dosage: once a day
     Route: 048
     Dates: start: 20120720, end: 20120806

REACTIONS (3)
  - Urticaria [None]
  - Rash [None]
  - Systemic lupus erythematosus [None]
